FAERS Safety Report 10690625 (Version 3)
Quarter: 2015Q1

REPORT INFORMATION
  Report Type: Spontaneous
  Country: IT (occurrence: IT)
  Receive Date: 20150105
  Receipt Date: 20150228
  Transmission Date: 20150720
  Serious: Yes (Other)
  Sender: FDA-Public Use
  Company Number: PHHY2014IT169607

PATIENT
  Age: 33 Year
  Sex: Female
  Weight: 70 kg

DRUGS (5)
  1. GILENYA [Suspect]
     Active Substance: FINGOLIMOD HYDROCHLORIDE
     Indication: MULTIPLE SCLEROSIS
     Dosage: 0.5 MG, QD
     Route: 048
     Dates: start: 20110630, end: 20140927
  2. TYSABRI [Suspect]
     Active Substance: NATALIZUMAB
     Indication: PRODUCT USED FOR UNKNOWN INDICATION
     Route: 065
  3. MIRAPEXIN [Concomitant]
     Active Substance: PRAMIPEXOLE
     Indication: RESTLESS LEGS SYNDROME
     Dosage: 0.35 MG, QD
     Route: 048
     Dates: end: 20140927
  4. DIBASE [Concomitant]
     Active Substance: CHOLECALCIFEROL
     Indication: VITAMIN D DEFICIENCY
     Dosage: 25 DRP, QW
     Route: 048
     Dates: end: 20140927
  5. PRADIF [Concomitant]
     Indication: URINARY RETENTION
     Dosage: 0.4 MG, QD
     Route: 048
     Dates: end: 20140927

REACTIONS (3)
  - Multiple sclerosis relapse [Unknown]
  - Central nervous system lesion [Unknown]
  - Maternal exposure during pregnancy [Unknown]

NARRATIVE: CASE EVENT DATE: 20141020
